FAERS Safety Report 9949781 (Version 1)
Quarter: 2014Q1

REPORT INFORMATION
  Report Type: Report from Study
  Country: US (occurrence: US)
  Receive Date: 20140304
  Receipt Date: 20140304
  Transmission Date: 20141002
  Serious: No
  Sender: FDA-Public Use
  Company Number: US-ABBVIE-13P-163-1067780-00

PATIENT
  Age: 43 Year
  Sex: Male

DRUGS (3)
  1. HUMIRA [Suspect]
     Indication: HIDRADENITIS
     Dosage: ONE-TIME DOSE
     Route: 058
     Dates: start: 201303, end: 201303
  2. HUMIRA [Suspect]
     Route: 058
     Dates: start: 20130322
  3. ERYTHROMYCIN [Concomitant]
     Indication: HIDRADENITIS

REACTIONS (3)
  - Underdose [Unknown]
  - Injection site pain [Recovered/Resolved]
  - Injection site pain [Recovered/Resolved]
